FAERS Safety Report 13785571 (Version 1)
Quarter: 2017Q3

REPORT INFORMATION
  Report Type: Spontaneous
  Country: FR (occurrence: FR)
  Receive Date: 20170725
  Receipt Date: 20170725
  Transmission Date: 20171127
  Serious: Yes (Hospitalization, Other)
  Sender: FDA-Public Use
  Company Number: FR-BRISTOL-MYERS SQUIBB COMPANY-BMS-2017-064618

PATIENT
  Age: 61 Year
  Sex: Male

DRUGS (4)
  1. DEXAMETHASONE. [Concomitant]
     Active Substance: DEXAMETHASONE
     Indication: ACUTE LYMPHOCYTIC LEUKAEMIA
     Dosage: UNK
     Route: 065
     Dates: start: 201405, end: 201406
  2. VINCRISTINE [Concomitant]
     Active Substance: VINCRISTINE
     Indication: ACUTE LYMPHOCYTIC LEUKAEMIA
     Dosage: UNK
     Route: 065
     Dates: start: 201405, end: 201406
  3. ARACYTIN [Concomitant]
     Active Substance: CYTARABINE
     Indication: ACUTE LYMPHOCYTIC LEUKAEMIA
     Dosage: UNK
     Route: 065
     Dates: start: 201405, end: 201406
  4. SPRYCEL [Suspect]
     Active Substance: DASATINIB
     Indication: ACUTE LYMPHOCYTIC LEUKAEMIA
     Dosage: 1 TAB, QD
     Route: 048
     Dates: start: 201405, end: 201706

REACTIONS (8)
  - Pericardial effusion [Unknown]
  - Septic shock [Unknown]
  - Pleural effusion [Not Recovered/Not Resolved]
  - Pulmonary hypertension [Unknown]
  - Decubitus ulcer [Unknown]
  - Pyrexia [Unknown]
  - Inflammation [Unknown]
  - Pulmonary arterial wedge pressure [Unknown]

NARRATIVE: CASE EVENT DATE: 20170608
